FAERS Safety Report 14655640 (Version 3)
Quarter: 2018Q2

REPORT INFORMATION
  Report Type: Spontaneous
  Country: US (occurrence: US)
  Receive Date: 20180319
  Receipt Date: 20180412
  Transmission Date: 20180711
  Serious: No
  Sender: FDA-Public Use
  Company Number: US-TEVA-2018-US-864332

PATIENT
  Sex: Male

DRUGS (1)
  1. FENTANYL. [Suspect]
     Active Substance: FENTANYL
     Indication: PAIN

REACTIONS (8)
  - Nausea [Unknown]
  - Formication [Unknown]
  - Product adhesion issue [Unknown]
  - Drug ineffective [Unknown]
  - Agitation [Unknown]
  - Hyperhidrosis [Unknown]
  - Application site rash [Unknown]
  - Withdrawal syndrome [Unknown]
